FAERS Safety Report 4440868-6 (Version None)
Quarter: 2004Q3

REPORT INFORMATION
  Report Type: 
  Country: None (occurrence: None)
  Receive Date: 20040728
  Receipt Date: 20040329
  Transmission Date: 20050211
  Serious: No
  Sender: FDA-Public Use
  Company Number: USA031253544

PATIENT
  Age: 16 Year
  Sex: Male

DRUGS (4)
  1. STRATTERA [Suspect]
     Indication: ATTENTION DEFICIT/HYPERACTIVITY DISORDER
     Dosage: 40 MG/1 DAY
     Dates: start: 20030829
  2. ZOLOFT [Concomitant]
  3. LITHOBID [Concomitant]
  4. RISPERDAL [Concomitant]

REACTIONS (1)
  - DERMATITIS CONTACT [None]
